FAERS Safety Report 4834877-2 (Version None)
Quarter: 2005Q4

REPORT INFORMATION
  Report Type: 
  Country: None (occurrence: None)
  Receive Date: 20051115
  Receipt Date: 20051110
  Transmission Date: 20060501
  Serious: Yes (Other)
  Sender: FDA-Public Use
  Company Number: SUSI-2005-00826

PATIENT
  Sex: Male

DRUGS (1)
  1. ADDERALL (DEXTROAMPHETAMINE SULFATE, DEXTROAMPHETAMINE SACCHARATE, [Suspect]

REACTIONS (3)
  - HALLUCINATION, AUDITORY [None]
  - HOMICIDAL IDEATION [None]
  - SUICIDAL IDEATION [None]
